FAERS Safety Report 4510347-6 (Version None)
Quarter: 2004Q4

REPORT INFORMATION
  Report Type: 
  Country: None (occurrence: None)
  Receive Date: 20041119
  Receipt Date: 20041108
  Transmission Date: 20050328
  Serious: Yes (Other)
  Sender: FDA-Public Use
  Company Number: GB-2004-034749

PATIENT
  Sex: 0

DRUGS (1)
  1. BETAFERON         (INTERFERON BETA - 1) [Suspect]

REACTIONS (1)
  - METASTASIS [None]
